FAERS Safety Report 6196965-0 (Version None)
Quarter: 2009Q2

REPORT INFORMATION
  Report Type: 
  Country: None (occurrence: None)
  Receive Date: 20090520
  Receipt Date: 20090511
  Transmission Date: 20091009
  Serious: Yes (Hospitalization, Other)
  Sender: FDA-Public Use
  Company Number: PHHY2009FR08728

PATIENT
  Sex: Female

DRUGS (15)
  1. TRILEPTAL [Suspect]
     Indication: EPILEPSY
     Dosage: UNK
     Dates: start: 20060101
  2. TRILEPTAL [Suspect]
     Dosage: 3 DF
     Dates: start: 20081202, end: 20081203
  3. TRILEPTAL [Suspect]
     Dosage: 2 DF
     Dates: start: 20081204, end: 20081207
  4. TRILEPTAL [Suspect]
     Dosage: 1 DF
     Dates: start: 20081208
  5. TRILEPTAL [Suspect]
     Dosage: 400 MG
     Dates: end: 20090119
  6. SANMIGRAN [Suspect]
     Indication: MIGRAINE
     Dosage: UNK
     Dates: end: 20081128
  7. STABLON [Suspect]
     Dosage: UNK
     Dates: end: 20081128
  8. ESOMEPRAZOLE MAGNESIUM [Suspect]
     Dosage: UNK
     Dates: end: 20081128
  9. MEBEVERINE [Suspect]
     Dosage: UNK
     Dates: end: 20081128
  10. LEVOTHYROX [Suspect]
     Dosage: UNK
  11. ATARAX [Concomitant]
     Dosage: UNK
  12. TRIATEC [Concomitant]
     Dosage: UNK
  13. AVLOCARDYL [Concomitant]
     Dosage: UNK
  14. XANAX [Concomitant]
     Dosage: UNK
  15. IMOVANE [Concomitant]
     Dosage: UNK

REACTIONS (7)
  - ABDOMINAL PAIN [None]
  - ANTICONVULSANT DRUG LEVEL INCREASED [None]
  - BLOOD ALKALINE PHOSPHATASE INCREASED [None]
  - CHOLESTASIS [None]
  - DIZZINESS [None]
  - GAMMA-GLUTAMYLTRANSFERASE INCREASED [None]
  - VOMITING [None]
